FAERS Safety Report 7224650-2 (Version None)
Quarter: 2010Q4

REPORT INFORMATION
  Report Type: 
  Country: None (occurrence: None)
  Receive Date: 20101126
  Receipt Date: 20100914
  Transmission Date: 20110411
  Serious: No
  Sender: FDA-Public Use
  Company Number: 315075

PATIENT
  Sex: Female

DRUGS (3)
  1. VICTOZA [Suspect]
     Indication: DIABETES MELLITUS
     Dosage: SUBCUTANEOUS
     Route: 058
     Dates: start: 20100801
  2. VICTOZA [Suspect]
     Indication: WEIGHT DECREASED
     Dosage: SUBCUTANEOUS
     Route: 058
     Dates: start: 20100801
  3. ASPIRIN [Concomitant]

REACTIONS (1)
  - INJECTION SITE HAEMATOMA [None]
